FAERS Safety Report 19488526 (Version 3)
Quarter: 2021Q3

REPORT INFORMATION
  Report Type: Report from Study
  Country: BE (occurrence: BE)
  Receive Date: 20210702
  Receipt Date: 20210824
  Transmission Date: 20211014
  Serious: Yes (Hospitalization)
  Sender: FDA-Public Use
  Company Number: BE-JNJFOC-20210661871

PATIENT
  Age: 73 Year
  Sex: Female
  Weight: 90.6 kg

DRUGS (13)
  1. LENALIDOMIDE [Concomitant]
     Active Substance: LENALIDOMIDE
     Indication: PLASMA CELL MYELOMA
     Route: 048
     Dates: start: 20160812, end: 20200806
  2. OTILONIUM. [Concomitant]
     Active Substance: OTILONIUM
     Indication: DIARRHOEA
     Route: 048
     Dates: start: 20170127
  3. TINZAPARINE SODIQUE [Concomitant]
     Active Substance: TINZAPARIN SODIUM
     Indication: DEEP VEIN THROMBOSIS
     Dosage: DOSE 14000, UNITS OTHER
     Route: 058
     Dates: start: 20200814
  4. BUPRENORPHINE. [Concomitant]
     Active Substance: BUPRENORPHINE
     Indication: LUMBAR SPINAL STENOSIS
     Dosage: DOSE 52.5, UNITS OTHER
     Route: 061
     Dates: start: 20201009
  5. IRON SULPHATE [Concomitant]
     Active Substance: FERROUS SULFATE ANHYDROUS
     Indication: ANAEMIA
     Route: 048
     Dates: start: 20201226
  6. GELATINE POLYSUCCINATE [Concomitant]
     Indication: DIARRHOEA
     Route: 048
     Dates: start: 202006
  7. BUMETANIDE. [Concomitant]
     Active Substance: BUMETANIDE
     Indication: FLUID OVERLOAD
     Route: 048
     Dates: start: 20200717
  8. BEFACT [CYANOCOBALAMIN;PYRIDOXINE;THIAMINE] [Concomitant]
     Indication: VITAMIN B12 DEFICIENCY
     Dosage: 1 TABLET
     Route: 048
     Dates: start: 20201204
  9. DEXAMETHASONE. [Suspect]
     Active Substance: DEXAMETHASONE
     Indication: PLASMA CELL MYELOMA
     Dosage: MOST RECENT DATE ADMINISTERED WAS ON 18?JUN?2021
     Route: 048
     Dates: start: 20160812
  10. ALIZAPRIDE [Concomitant]
     Active Substance: ALIZAPRIDE
     Indication: NAUSEA
     Route: 048
  11. BUMETANIDE. [Concomitant]
     Active Substance: BUMETANIDE
     Indication: CARDIAC FAILURE
  12. APIXABAN [Concomitant]
     Active Substance: APIXABAN
     Indication: ANTICOAGULANT THERAPY
  13. DARATUMUMAB [Suspect]
     Active Substance: DARATUMUMAB
     Indication: PLASMA CELL MYELOMA
     Dosage: CYCLICAL, MOST RECENT DATE ADMINISTERED WAS ON 18?JUN?2021?MEDICAL KIT 838962
     Route: 058
     Dates: start: 20160812

REACTIONS (1)
  - Cholangitis [Recovered/Resolved]

NARRATIVE: CASE EVENT DATE: 20210622
